FAERS Safety Report 22988083 (Version 4)
Quarter: 2023Q4

REPORT INFORMATION
  Report Type: Spontaneous
  Country: US (occurrence: US)
  Receive Date: 20230926
  Receipt Date: 20231128
  Transmission Date: 20240110
  Serious: No
  Sender: FDA-Public Use
  Company Number: US-SA-SAC20230925000273

PATIENT
  Age: 3 Year
  Sex: Male

DRUGS (4)
  1. ALPROLIX [Suspect]
     Active Substance: EFTRENONACOG ALFA
     Indication: Haemorrhage prophylaxis
     Dosage: 750/1000 UNITS (+/-10%), QW
     Route: 042
  2. ALPROLIX [Suspect]
     Active Substance: EFTRENONACOG ALFA
     Indication: Haemorrhage prophylaxis
     Dosage: 750/1000 UNITS (+/-10%), QW
     Route: 042
  3. ALPROLIX [Suspect]
     Active Substance: EFTRENONACOG ALFA
     Indication: Haemorrhage
     Dosage: 750/1000 UNITS (+/-10%), PRN
     Route: 042
  4. ALPROLIX [Suspect]
     Active Substance: EFTRENONACOG ALFA
     Indication: Haemorrhage
     Dosage: 750/1000 UNITS (+/-10%), PRN
     Route: 042

REACTIONS (8)
  - Traumatic haemorrhage [Unknown]
  - Haematoma [Unknown]
  - Road traffic accident [Unknown]
  - Wound [Recovering/Resolving]
  - Fall [Unknown]
  - Skin abrasion [Recovering/Resolving]
  - Contusion [Recovering/Resolving]
  - Face injury [Unknown]

NARRATIVE: CASE EVENT DATE: 20230911
